FAERS Safety Report 16834200 (Version 2)
Quarter: 2020Q1

REPORT INFORMATION
  Report Type: Spontaneous
  Country: CO (occurrence: CO)
  Receive Date: 20190920
  Receipt Date: 20200108
  Transmission Date: 20200409
  Serious: Yes (Other)
  Sender: FDA-Public Use
  Company Number: CO-PFIZER INC-2019400945

PATIENT
  Age: 44 Year
  Sex: Male

DRUGS (2)
  1. XALKORI [Suspect]
     Active Substance: CRIZOTINIB
     Dosage: 250 MG, UNK
  2. XALKORI [Suspect]
     Active Substance: CRIZOTINIB
     Indication: LUNG CANCER METASTATIC
     Dosage: 250 MG, 2X/DAY (1 IN THE MORNING AND 1 AT NIGHT)
     Route: 048

REACTIONS (12)
  - Decreased immune responsiveness [Unknown]
  - Dizziness [Unknown]
  - Dyspnoea [Unknown]
  - Inflammation [Unknown]
  - Erythema [Unknown]
  - Gastritis [Unknown]
  - Pigmentation disorder [Unknown]
  - Photopsia [Unknown]
  - Weight decreased [Unknown]
  - Constipation [Unknown]
  - Alcohol poisoning [Unknown]
  - Vomiting [Unknown]
